FAERS Safety Report 9223030 (Version 2)
Quarter: 2013Q3

REPORT INFORMATION
  Report Type: Spontaneous
  Country: US (occurrence: None)
  Receive Date: 20120914
  Receipt Date: 20130916
  Transmission Date: 20140515
  Serious: Yes (Other)
  Sender: FDA-Public Use
  Company Number: JPI-P-018900

PATIENT
  Age: 48 Year
  Sex: Female
  Weight: 95.26 kg

DRUGS (24)
  1. XYREM [Suspect]
     Indication: CATAPLEXY
     Route: 048
     Dates: start: 20111216, end: 201112
  2. PREGABALIN [Suspect]
     Indication: NEURALGIA
     Route: 048
     Dates: start: 2010, end: 2012
  3. ACETAMINOPHEN/OXYCODONE [Suspect]
     Indication: PAIN
     Dosage: UNKNOWN, 4 IN 1 D), ORAL
     Route: 048
     Dates: end: 2012
  4. OMEPRAZOLE [Concomitant]
  5. ONGLYZA (SAXAGLIPTIN) [Concomitant]
  6. SUMATRIPTAN [Concomitant]
  7. ACETYLSALICYLIC ACID [Concomitant]
  8. PLUMICORT (BUDESONIDE) [Concomitant]
  9. ALBUTEROL [Concomitant]
  10. TRAMADOL [Concomitant]
  11. CONJUGATED ESTROGENS (PREMARIN) [Concomitant]
  12. MEDROXYPROGESTERONE [Concomitant]
  13. ARMODAFINIL [Concomitant]
  14. ROSUVASTATIN CALCIUM [Concomitant]
  15. TOPIRAMATE [Concomitant]
  16. RISPERIDONE [Concomitant]
  17. ZIPRASIDONE (GEODON) [Concomitant]
  18. DULOXETINE HYDROCHLORIDE [Concomitant]
  19. FENOFIBRATE (ANTARA) [Concomitant]
  20. ALBUTEROL SULFATE (PROAIR) [Concomitant]
  21. METFORMIN [Concomitant]
  22. DIAZEPAM [Concomitant]
  23. TRAZODONE [Concomitant]
  24. ROSUVASTATIN [Concomitant]

REACTIONS (16)
  - Weight decreased [None]
  - Anxiety [None]
  - Anger [None]
  - Dry mouth [None]
  - Abnormal dreams [None]
  - Affect lability [None]
  - Chest pain [None]
  - Night sweats [None]
  - Decreased appetite [None]
  - Tremor [None]
  - Migraine [None]
  - Sedation [None]
  - Disorientation [None]
  - Dizziness [None]
  - Asthenia [None]
  - Dysgeusia [None]
